FAERS Safety Report 17059207 (Version 3)
Quarter: 2019Q4

REPORT INFORMATION
  Report Type: Spontaneous
  Country: US (occurrence: US)
  Receive Date: 20191121
  Receipt Date: 20191210
  Transmission Date: 20200122
  Serious: No
  Sender: FDA-Public Use
  Company Number: US-PFIZER INC-2019503011

PATIENT
  Age: 62 Year
  Sex: Female
  Weight: 66.67 kg

DRUGS (4)
  1. ADVIL LIQUI-GELS [Suspect]
     Active Substance: IBUPROFEN
     Dosage: 2 DF, UNK  (2 ADVIL LIQUIGELS MINIS CAPSULES)
  2. ADVIL LIQUI-GELS [Suspect]
     Active Substance: IBUPROFEN
     Dosage: UNK
  3. ADVIL LIQUI-GELS [Suspect]
     Active Substance: IBUPROFEN
     Dosage: 1 DF, UNK (DECREASED DOSE OF 1 CAPSULE TAKEN)
  4. ADVIL LIQUI-GELS [Suspect]
     Active Substance: IBUPROFEN
     Indication: PAIN MANAGEMENT
     Dosage: UNK

REACTIONS (2)
  - Abdominal discomfort [Unknown]
  - Malaise [Unknown]
